FAERS Safety Report 20198435 (Version 1)
Quarter: 2021Q4

REPORT INFORMATION
  Report Type: Spontaneous
  Country: US (occurrence: None)
  Receive Date: 20211216
  Receipt Date: 20211216
  Transmission Date: 20220303
  Serious: Yes (Hospitalization)
  Sender: FDA-Public Use
  Company Number: None

PATIENT
  Sex: Female

DRUGS (3)
  1. ABILIFY MAINTENA [Suspect]
     Active Substance: ARIPIPRAZOLE
     Indication: Schizoaffective disorder bipolar type
     Dosage: FREQUENCY : MONTHLY;?
     Route: 030
     Dates: start: 20210701
  2. PROGESTERONE [Concomitant]
     Active Substance: PROGESTERONE
  3. WELLBUTRIN XL [Concomitant]
     Active Substance: BUPROPION HYDROCHLORIDE

REACTIONS (2)
  - Hospitalisation [None]
  - Therapy interrupted [None]
